FAERS Safety Report 19677899 (Version 1)
Quarter: 2021Q3

REPORT INFORMATION
  Report Type: Spontaneous
  Country: US (occurrence: US)
  Receive Date: 20210810
  Receipt Date: 20210810
  Transmission Date: 20211014
  Serious: No
  Sender: FDA-Public Use
  Company Number: US-ALVOGEN-2020-ALVOGEN-115295

PATIENT
  Age: 42 Year
  Sex: Male

DRUGS (1)
  1. GABAPENTINE [Suspect]
     Active Substance: GABAPENTIN
     Indication: NEURALGIA
     Dosage: 1200MG DAILY BY MOUTH

REACTIONS (2)
  - Dizziness [Unknown]
  - Anterograde amnesia [Unknown]
